FAERS Safety Report 6280296-4 (Version None)
Quarter: 2009Q3

REPORT INFORMATION
  Report Type: 
  Country: None (occurrence: None)
  Receive Date: 20090723
  Receipt Date: 20090717
  Transmission Date: 20100115
  Serious: Yes (Disabling)
  Sender: FDA-Public Use
  Company Number: CA-ASTRAZENECA-2009UW16189

PATIENT
  Age: 1027 Month
  Sex: Female

DRUGS (7)
  1. ARIMIDEX [Suspect]
     Indication: BREAST CANCER
     Route: 048
     Dates: start: 20060901
  2. LOVAZA [Concomitant]
  3. METFORMIN HCL [Concomitant]
     Indication: DIABETES MELLITUS
  4. METOPROLOL SUCCINATE [Concomitant]
     Indication: HYPERTENSION
  5. GEN-NIFEDIPINE [Concomitant]
     Indication: HYPERTENSION
  6. AVALIDE [Concomitant]
     Indication: HYPERTENSION
  7. ASPIRIN [Concomitant]

REACTIONS (3)
  - ASTHENIA [None]
  - FATIGUE [None]
  - MUSCULAR WEAKNESS [None]
